FAERS Safety Report 12169712 (Version 12)
Quarter: 2019Q1

REPORT INFORMATION
  Report Type: Spontaneous
  Country: KR (occurrence: KR)
  Receive Date: 20160310
  Receipt Date: 20190218
  Transmission Date: 20190417
  Serious: Yes (Hospitalization, Other)
  Sender: FDA-Public Use
  Company Number: KR-ROCHE-1678946

PATIENT
  Age: 75 Year
  Sex: Female
  Weight: 92 kg

DRUGS (68)
  1. PERJETA [Suspect]
     Active Substance: PERTUZUMAB
     Route: 042
     Dates: start: 20151215
  2. PERJETA [Suspect]
     Active Substance: PERTUZUMAB
     Route: 042
     Dates: start: 20160126
  3. HERCEPTIN [Suspect]
     Active Substance: TRASTUZUMAB
     Route: 042
     Dates: start: 20160216
  4. MAGNESIUM OXIDE. [Concomitant]
     Active Substance: MAGNESIUM OXIDE
     Indication: ULCER
     Route: 048
     Dates: start: 20151103
  5. ACTOS [Concomitant]
     Active Substance: PIOGLITAZONE HYDROCHLORIDE
     Indication: DIABETES MELLITUS
     Route: 048
     Dates: start: 20151023
  6. DIABEX [Concomitant]
     Active Substance: METFORMIN HYDROCHLORIDE
     Indication: DIABETES MELLITUS
     Route: 048
     Dates: start: 20151023
  7. DOCETAXEL. [Suspect]
     Active Substance: DOCETAXEL
     Route: 042
     Dates: start: 20160126
  8. DENOGAN [Concomitant]
     Active Substance: PROPACETAMOL HYDROCHLORIDE
     Indication: PAIN PROPHYLAXIS
     Route: 042
     Dates: start: 20151103, end: 20151103
  9. PHOSTEN [Concomitant]
     Route: 042
     Dates: start: 20151114, end: 20151205
  10. NYSTATIN. [Concomitant]
     Active Substance: NYSTATIN
     Indication: STOMATITIS
     Route: 065
     Dates: start: 20151204, end: 20160112
  11. ENCOVER [Concomitant]
     Route: 048
     Dates: start: 20151216, end: 20151227
  12. PROAMINE [Concomitant]
     Route: 042
     Dates: start: 20160105, end: 20160116
  13. LEUCOSTIM [Concomitant]
     Active Substance: FILGRASTIM
     Route: 042
     Dates: start: 20160223, end: 20160224
  14. NASERON [Concomitant]
     Indication: VOMITING
     Route: 048
     Dates: start: 20151216, end: 20160108
  15. PERJETA [Suspect]
     Active Substance: PERTUZUMAB
     Route: 042
     Dates: start: 20160105
  16. HERCEPTIN [Suspect]
     Active Substance: TRASTUZUMAB
     Route: 042
     Dates: start: 20160126
  17. PYRIDOXINE [Concomitant]
     Active Substance: PYRIDOXINE
     Route: 048
     Dates: start: 20151023
  18. LOPERAMIDE [Concomitant]
     Active Substance: LOPERAMIDE
     Indication: DIARRHOEA
     Route: 048
     Dates: start: 20151114
  19. SOLONDO [Concomitant]
     Active Substance: PREDNISOLONE
     Indication: STOMATITIS
     Route: 065
     Dates: start: 20151202
  20. NUTRIFLEX-LIPID PERI [Concomitant]
     Route: 042
     Dates: start: 20151203, end: 20151226
  21. APIDRA [Concomitant]
     Active Substance: INSULIN GLULISINE
     Indication: DIABETES MELLITUS
     Dosage: 1 UNIT
     Route: 042
     Dates: start: 20151223
  22. THIAMINE. [Concomitant]
     Active Substance: THIAMINE
     Route: 042
     Dates: start: 20160203, end: 20160227
  23. FURTMAN [Concomitant]
     Route: 042
     Dates: start: 20160203, end: 20160227
  24. LEUCOSTIM [Concomitant]
     Active Substance: FILGRASTIM
     Indication: NEUTROPENIA
     Route: 042
     Dates: start: 20151112, end: 20151115
  25. PERJETA [Suspect]
     Active Substance: PERTUZUMAB
     Route: 042
     Dates: start: 20151124
  26. DICHLOZID [Concomitant]
     Indication: HYPERTENSION
     Route: 048
     Dates: start: 20151023, end: 20151203
  27. CACL [Concomitant]
     Indication: HYPOCALCAEMIA
     Route: 042
     Dates: start: 20151224, end: 20160223
  28. LEUCOSTIM [Concomitant]
     Active Substance: FILGRASTIM
     Route: 042
     Dates: start: 20151202, end: 20151204
  29. LEUCOSTIM [Concomitant]
     Active Substance: FILGRASTIM
     Route: 042
     Dates: start: 20160203, end: 20160203
  30. HERCEPTIN [Suspect]
     Active Substance: TRASTUZUMAB
     Indication: BREAST CANCER
     Route: 042
     Dates: start: 20151103, end: 20151103
  31. DOCETAXEL. [Suspect]
     Active Substance: DOCETAXEL
     Route: 042
     Dates: start: 20160216
  32. COZAAR [Concomitant]
     Active Substance: LOSARTAN POTASSIUM
     Indication: HYPERTENSION
     Route: 048
     Dates: start: 20151025
  33. LIVALO [Concomitant]
     Active Substance: PITAVASTATIN CALCIUM
     Route: 048
     Dates: start: 20151023
  34. TORSEMIDE. [Concomitant]
     Active Substance: TORSEMIDE
     Indication: HYPERTENSION
     Route: 048
     Dates: start: 20151103
  35. NORZYME [Concomitant]
     Indication: DYSPEPSIA
     Route: 048
     Dates: start: 20151115, end: 20151115
  36. KCL [Concomitant]
     Active Substance: POTASSIUM CHLORIDE
     Indication: HYPOKALAEMIA
     Route: 042
     Dates: start: 20160204, end: 20160228
  37. HERCEPTIN [Suspect]
     Active Substance: TRASTUZUMAB
     Route: 042
     Dates: start: 20160105
  38. DOCETAXEL. [Suspect]
     Active Substance: DOCETAXEL
     Route: 042
     Dates: start: 20160105
  39. DIPEPTIVEN [Concomitant]
     Active Substance: ALANYL GLUTAMINE
     Route: 042
     Dates: start: 20160203, end: 20160227
  40. CURAN [Concomitant]
     Active Substance: RANITIDINE HYDROCHLORIDE
     Indication: ULCER
     Route: 048
     Dates: start: 20151103
  41. PENIRAMIN [Concomitant]
     Indication: INFECTION PROPHYLAXIS
     Route: 042
     Dates: start: 20151103
  42. AMOSARTAN [Concomitant]
     Indication: HYPERTENSION
     Dosage: 1 TABLET
     Route: 048
     Dates: start: 20151023, end: 20151203
  43. NEULASTA [Concomitant]
     Active Substance: PEGFILGRASTIM
     Indication: LEUKOPENIA
     Route: 058
     Dates: start: 20151217, end: 20160218
  44. PERJETA [Suspect]
     Active Substance: PERTUZUMAB
     Indication: BREAST CANCER
     Route: 042
     Dates: start: 20151103, end: 20151103
  45. PERJETA [Suspect]
     Active Substance: PERTUZUMAB
     Route: 042
     Dates: start: 20160216
  46. HERCEPTIN [Suspect]
     Active Substance: TRASTUZUMAB
     Route: 042
     Dates: start: 20151124
  47. HERCEPTIN [Suspect]
     Active Substance: TRASTUZUMAB
     Route: 042
     Dates: start: 20151215
  48. DOCETAXEL. [Suspect]
     Active Substance: DOCETAXEL
     Indication: BREAST CANCER
     Route: 042
     Dates: start: 20151103, end: 20160105
  49. ADALAT [Concomitant]
     Active Substance: NIFEDIPINE
     Indication: HYPERTENSION
     Route: 048
     Dates: start: 20151025
  50. DEXAMETHASONE. [Concomitant]
     Active Substance: DEXAMETHASONE
     Indication: NEUROPATHY PERIPHERAL
     Route: 042
     Dates: start: 20151104
  51. SMECTA [Concomitant]
     Active Substance: MONTMORILLONITE
     Indication: DIARRHOEA
     Route: 048
     Dates: start: 20151113, end: 20160205
  52. WINUF PERI [Concomitant]
     Route: 042
     Dates: start: 20160203, end: 20160228
  53. KETORAC [Concomitant]
     Indication: FEBRILE NEUTROPENIA
     Route: 030
     Dates: start: 20160223, end: 20160223
  54. DOCETAXEL. [Suspect]
     Active Substance: DOCETAXEL
     Route: 042
     Dates: start: 20151124
  55. DOCETAXEL. [Suspect]
     Active Substance: DOCETAXEL
     Route: 042
     Dates: start: 20151215
  56. NEOPLATIN (SOUTH KOREA) [Concomitant]
     Indication: NEOPLASM MALIGNANT
     Route: 042
     Dates: start: 20151103, end: 20151103
  57. ALOXI [Concomitant]
     Active Substance: PALONOSETRON HYDROCHLORIDE
     Indication: PROPHYLAXIS OF NAUSEA AND VOMITING
     Route: 042
     Dates: start: 20151103
  58. TANTUM (SOUTH KOREA) [Concomitant]
     Indication: PROPHYLAXIS
     Dosage: GARGLE
     Route: 048
     Dates: start: 20151103
  59. SYNTHROID [Concomitant]
     Active Substance: LEVOTHYROXINE SODIUM
     Indication: THYROID CANCER
     Route: 048
     Dates: start: 20110714
  60. KABIVEN PI [Concomitant]
     Indication: NUTRITIONAL SUPPLEMENTATION
     Route: 042
     Dates: start: 20151112, end: 20151216
  61. MAXIPIME [Concomitant]
     Active Substance: CEFEPIME HYDROCHLORIDE
     Indication: NEUTROPENIA
     Route: 042
     Dates: start: 20151112, end: 20160223
  62. PHAZYME [Concomitant]
     Active Substance: DIMETHICONE 410
     Indication: DYSPEPSIA
     Dosage: 3 TABLET
     Route: 048
     Dates: start: 20151116
  63. DISTILLED WATER [Concomitant]
     Indication: STOMATITIS
     Route: 065
     Dates: start: 20151202
  64. KYMOXIN [Concomitant]
     Indication: STOMATITIS
     Route: 065
     Dates: start: 20151202
  65. YAMATETAN [Concomitant]
     Indication: LEUKOCYTOSIS
     Route: 042
     Dates: start: 20160115, end: 20160116
  66. CALCIUM CARBONATE. [Concomitant]
     Active Substance: CALCIUM CARBONATE
     Indication: HYPOCALCAEMIA
     Route: 048
     Dates: start: 20160127, end: 20160229
  67. XARELTO [Concomitant]
     Active Substance: RIVAROXABAN
     Indication: DIZZINESS
     Route: 048
     Dates: start: 20160128
  68. LEUCOSTIM [Concomitant]
     Active Substance: FILGRASTIM
     Route: 042
     Dates: start: 20151223, end: 20151223

REACTIONS (15)
  - Alanine aminotransferase increased [Recovered/Resolved]
  - Dyspepsia [Not Recovered/Not Resolved]
  - Dizziness [Not Recovered/Not Resolved]
  - Aspartate aminotransferase increased [Recovered/Resolved]
  - Stomatitis [Not Recovered/Not Resolved]
  - Febrile neutropenia [Recovered/Resolved]
  - Febrile neutropenia [Recovered/Resolved]
  - Leukocytosis [Recovered/Resolved]
  - Hypocalcaemia [Not Recovered/Not Resolved]
  - Anaemia [Not Recovered/Not Resolved]
  - Neutropenia [Recovered/Resolved]
  - Diarrhoea [Recovered/Resolved]
  - Vomiting [Recovered/Resolved]
  - Vomiting [Recovered/Resolved]
  - Hypokalaemia [Recovered/Resolved]

NARRATIVE: CASE EVENT DATE: 20151112
